FAERS Safety Report 4450987-6 (Version None)
Quarter: 2004Q3

REPORT INFORMATION
  Report Type: 
  Country: None (occurrence: None)
  Receive Date: 20040916
  Receipt Date: 20040302
  Transmission Date: 20050211
  Serious: Yes (Other)
  Sender: FDA-Public Use
  Company Number: US-BRISTOL-MYERS SQUIBB COMPANY-12526307

PATIENT
  Age: 58 Year
  Sex: Female

DRUGS (6)
  1. STADOL [Suspect]
  2. STADOL [Suspect]
  3. NUBAIN [Concomitant]
  4. TALWIN [Concomitant]
  5. VENTOLIN [Concomitant]
  6. KEFLEX [Concomitant]

REACTIONS (1)
  - DEPENDENCE [None]
